FAERS Safety Report 21372226 (Version 1)
Quarter: 2022Q3

REPORT INFORMATION
  Report Type: Report from Study
  Country: IT (occurrence: IT)
  Receive Date: 20220924
  Receipt Date: 20220924
  Transmission Date: 20221027
  Serious: Yes (Other)
  Sender: FDA-Public Use
  Company Number: IT-CELLTRION INC.-2022IT015209

PATIENT

DRUGS (32)
  1. TRASTUZUMAB [Suspect]
     Active Substance: TRASTUZUMAB
     Indication: HER2 positive breast cancer
     Dosage: 8 MILLIGRAM/KILOGRAM, 3/WEEK
     Dates: start: 20170418, end: 20170418
  2. TRASTUZUMAB [Suspect]
     Active Substance: TRASTUZUMAB
     Dosage: 6 MILLIGRAM/KILOGRAM
     Dates: start: 20170509, end: 20200803
  3. DOCETAXEL [Suspect]
     Active Substance: DOCETAXEL
     Indication: HER2 positive breast cancer
     Dosage: 60 MILLIGRAM, 3/WEEK
     Dates: start: 20170418, end: 20170418
  4. DOCETAXEL [Suspect]
     Active Substance: DOCETAXEL
     Dosage: 75 MILLIGRAM
     Dates: start: 20170509, end: 20170928
  5. EXEMESTANE [Suspect]
     Active Substance: EXEMESTANE
     Indication: HER2 positive breast cancer
     Dosage: 25 MILLIGRAM, QD
     Dates: start: 20171019, end: 20200803
  6. PERTUZUMAB [Suspect]
     Active Substance: PERTUZUMAB
     Indication: HER2 positive breast cancer
     Dosage: 840 MILLIGRAM, 3/WEEK
     Dates: start: 20170418, end: 20170418
  7. PERTUZUMAB [Suspect]
     Active Substance: PERTUZUMAB
     Dosage: 420 MILLIGRAM
     Dates: start: 20170418, end: 20170418
  8. FAM-TRASTUZUMAB DERUXTECAN-NXKI [Suspect]
     Active Substance: FAM-TRASTUZUMAB DERUXTECAN-NXKI
     Indication: HER2 positive breast cancer
     Dosage: 350 MILLIGRAM, 3/WEEK
     Dates: start: 20211020
  9. ADO-TRASTUZUMAB EMTANSINE [Suspect]
     Active Substance: ADO-TRASTUZUMAB EMTANSINE
     Indication: HER2 positive breast cancer
     Dosage: 3.6 MILLIGRAM/KILOGRAM, 3/WEEK, (PHARMACEUTICAL DOSAGE FORM: INFUSION, SOLUTION)
     Dates: start: 20200803, end: 20200927
  10. CALCIUM, COMBINATIONS WITH VITAMIN D AND/OR OTHER DRUGS [Concomitant]
     Dates: start: 20191014
  11. CHLORPHENIRAMINE [Concomitant]
     Active Substance: CHLORPHENIRAMINE
     Dates: start: 20170718
  12. ALLOPURINOL [Concomitant]
     Active Substance: ALLOPURINOL
     Dates: start: 20170412
  13. BROMELAINS [Concomitant]
     Active Substance: BROMELAINS
     Dates: start: 20180314
  14. PREDNISONE [Concomitant]
     Active Substance: PREDNISONE
     Dates: start: 20170717
  15. DEXAMETHASONE [Concomitant]
     Active Substance: DEXAMETHASONE
     Dosage: UNK
     Dates: start: 20170718
  16. DEXAMETHASONE [Concomitant]
     Active Substance: DEXAMETHASONE
     Dosage: UNK
     Dates: start: 20170817
  17. ENANTONE LP [Concomitant]
     Active Substance: LEUPROLIDE ACETATE
     Dates: start: 20171018
  18. ESCITALOPRAM [Concomitant]
     Active Substance: ESCITALOPRAM OXALATE
     Dates: start: 20171129
  19. EXEMESTANE [Concomitant]
     Active Substance: EXEMESTANE
     Dates: start: 20171018
  20. FUROSEMIDE [Concomitant]
     Active Substance: FUROSEMIDE
     Dates: start: 20170414
  21. FUROSEMIDE [Concomitant]
     Active Substance: FUROSEMIDE
     Dates: start: 20170525
  22. IMIDAZYL [Concomitant]
     Dates: start: 20170508
  23. KEFIBIOS [Concomitant]
     Dates: start: 20170412, end: 20180820
  24. LEVOSULPIRIDE [Concomitant]
     Active Substance: LEVOSULPIRIDE
     Dates: start: 20170718
  25. MICARDIS [Concomitant]
     Active Substance: TELMISARTAN
     Dates: start: 20170529
  26. NETTACIN [Concomitant]
     Dates: start: 20180912
  27. TOBRADEX [Concomitant]
     Active Substance: DEXAMETHASONE\TOBRAMYCIN
     Dates: start: 20180314
  28. FILGRASTIM [Concomitant]
     Active Substance: FILGRASTIM
     Dates: start: 20170601
  29. FILGRASTIM [Concomitant]
     Active Substance: FILGRASTIM
     Dosage: UNK
     Dates: start: 20170511
  30. ZOLEDRONIC ACID [Concomitant]
     Active Substance: ZOLEDRONIC ACID
     Dates: start: 20181019
  31. ZOMETA [Concomitant]
     Active Substance: ZOLEDRONIC ACID
     Dosage: UNK
     Dates: start: 20170414
  32. ZOMETA [Concomitant]
     Active Substance: ZOLEDRONIC ACID
     Dosage: UNK
     Dates: start: 20170718

REACTIONS (2)
  - Interstitial lung disease [Not Recovered/Not Resolved]
  - Eastern Cooperative Oncology Group performance status worsened [Not Recovered/Not Resolved]

NARRATIVE: CASE EVENT DATE: 20220616
